FAERS Safety Report 9417528 (Version 1)
Quarter: 2013Q3

REPORT INFORMATION
  Report Type: Spontaneous
  Country: US (occurrence: US)
  Receive Date: 20130724
  Receipt Date: 20130724
  Transmission Date: 20140515
  Serious: No
  Sender: FDA-Public Use
  Company Number: US-BRISTOL-MYERS SQUIBB COMPANY-19042829

PATIENT
  Age: 76 Year
  Sex: Female
  Weight: 68.03 kg

DRUGS (5)
  1. ELIQUIS [Suspect]
     Indication: ATRIAL FIBRILLATION
     Dosage: LAST DOSE:24JUN2013. LOT NUMBER:1J654388
     Dates: start: 20130325
  2. METOPROLOL [Concomitant]
  3. EXEMESTANE [Concomitant]
  4. ZOLOFT [Concomitant]
  5. LIBRAX [Concomitant]

REACTIONS (2)
  - Insomnia [Unknown]
  - Fatigue [Unknown]
